FAERS Safety Report 10207689 (Version 1)
Quarter: 2014Q2

REPORT INFORMATION
  Report Type: Spontaneous
  Country: US (occurrence: US)
  Receive Date: 20140530
  Receipt Date: 20140530
  Transmission Date: 20141212
  Serious: No
  Sender: FDA-Public Use
  Company Number: US-GLAXOSMITHKLINE-A1054905A

PATIENT
  Age: 91 Year
  Sex: Male

DRUGS (4)
  1. VENTOLIN [Suspect]
     Indication: PRODUCT USED FOR UNKNOWN INDICATION
     Dosage: 2PUFF SIX TIMES PER DAY
     Route: 055
     Dates: start: 20131227
  2. MULTIPLE MEDICATIONS [Concomitant]
  3. ANTIBIOTICS [Concomitant]
  4. SYMBICORT [Concomitant]

REACTIONS (2)
  - Dyspnoea [Recovered/Resolved]
  - Product quality issue [Unknown]
